FAERS Safety Report 8652289 (Version 6)
Quarter: 2013Q1

REPORT INFORMATION
  Report Type: Report from Study
  Country: JP (occurrence: JP)
  Receive Date: 20120622
  Receipt Date: 20130215
  Transmission Date: 20140127
  Serious: Yes (Other)
  Sender: FDA-Public Use
  Company Number: JP-009507513-2012SP032460

PATIENT
  Age: 64 Year
  Sex: Female
  Weight: 52 kg

DRUGS (29)
  1. PEGINTRON [Suspect]
     Indication: CHRONIC HEPATITIS C
     Dosage: 1.5 MICROGRAM PER KILOGRAM, QW
     Route: 058
     Dates: start: 20120329, end: 20120528
  2. REBETOL [Suspect]
     Indication: CHRONIC HEPATITIS C
     Dosage: 600 MG, QD
     Route: 048
     Dates: start: 20120329, end: 20120418
  3. REBETOL [Suspect]
     Dosage: 400 MG, QD
     Route: 048
     Dates: start: 20120419, end: 20120501
  4. REBETOL [Suspect]
     Dosage: 200 MG, QD
     Route: 048
     Dates: start: 20120502, end: 20120516
  5. TELAVIC [Suspect]
     Indication: CHRONIC HEPATITIS C
     Dosage: 2250 MG, QD
     Route: 048
     Dates: start: 20120329, end: 20120509
  6. TELAVIC [Suspect]
     Dosage: 1500 MG, QD
     Route: 048
     Dates: start: 20120510, end: 20120528
  7. L CARTIN [Concomitant]
     Indication: PROPHYLAXIS
     Dosage: 300 MG, TID
     Route: 048
     Dates: start: 20120329, end: 20120528
  8. FERO-GRADUMET [Concomitant]
     Indication: PROPHYLAXIS
     Dosage: 105 MG, BID
     Route: 048
     Dates: start: 20120329
  9. FERO-GRADUMET [Concomitant]
     Dosage: 2 DF, QD,
     Route: 048
     Dates: end: 20120528
  10. ALLEGRA [Concomitant]
     Indication: PROPHYLAXIS
     Dosage: 120 MG, QD
     Route: 048
     Dates: start: 20120330
  11. LOCOID [Concomitant]
     Indication: DRUG ERUPTION
     Dosage: ,PROPER QUANTITY/ DAY
     Route: 061
     Dates: start: 20120402, end: 20120528
  12. TALION (BEPOTASTINE BESYLATE) [Concomitant]
     Indication: DRUG ERUPTION
     Dosage: 20 MG, QD
     Route: 048
     Dates: start: 20120402, end: 20120528
  13. ZYLORIC [Concomitant]
     Indication: HYPERURICAEMIA
     Dosage: 200 MG, QD, POR
     Route: 048
     Dates: start: 20120419, end: 20120524
  14. MYSER (DIFLUPREDNATE) [Concomitant]
     Indication: RASH
     Dosage: 10 G/DAY, PRN
     Route: 061
     Dates: start: 20120517
  15. MYSER (DIFLUPREDNATE) [Concomitant]
     Dosage: 10 G, QD
     Route: 061
     Dates: start: 20120528
  16. HIRUDOID [Concomitant]
     Dosage: UNK
     Route: 061
  17. METHADERM [Concomitant]
     Route: 061
  18. ALLELOCK [Concomitant]
     Dosage: POR
     Route: 048
  19. GASTER [Concomitant]
     Dosage: POR
     Route: 048
     Dates: end: 20120921
  20. NIZORAL [Concomitant]
     Dosage: DAILY DOSE UNKNOWN, QD
     Route: 061
  21. FLORID [Concomitant]
     Dosage: DAILY DOSE UNKNOWN
     Route: 048
     Dates: start: 20120529, end: 20120610
  22. PREDONINE [Concomitant]
     Indication: DRUG ERUPTION
     Dosage: 25 MG, QD
     Route: 048
     Dates: start: 20120531, end: 20120626
  23. PREDONINE [Concomitant]
     Dosage: 22.5 MG, QD
     Route: 048
     Dates: start: 20120627, end: 20120702
  24. PREDONINE [Concomitant]
     Dosage: 20 MG, QD
     Route: 048
     Dates: start: 20120703, end: 20120719
  25. PREDONINE [Concomitant]
     Dosage: 17.5 MG, QD
     Route: 048
     Dates: start: 20120720, end: 20120809
  26. PREDONINE [Concomitant]
     Dosage: 12.5 MG, QD
     Route: 048
     Dates: start: 20120810, end: 20120906
  27. PREDONINE [Concomitant]
     Dosage: 5 MG, QD
     Route: 048
     Dates: start: 20120907, end: 20120920
  28. HACHIAZULE GARGLE [Concomitant]
     Dosage: MWH, 10 G,QD,DISSOLVE IN WATER WITH XYLOCAINE VISCOUS IN TOTAL OF 1 000 ML AND GARGLE 4 TIMES A DAY.
     Route: 049
     Dates: start: 20120609, end: 20120622
  29. [THERAPY UNSPECIFIED] [Concomitant]
     Dosage: EXT, 100 ML(20 MG/ ML) 20% OF BOTTLE/ DAY, DISSOLVE IN WATER WITH HACHIAZULE IN TOTAL 1000 ML.
     Route: 049
     Dates: start: 20120609, end: 20120622

REACTIONS (2)
  - Stevens-Johnson syndrome [Recovered/Resolved]
  - Hyperuricaemia [None]
